FAERS Safety Report 11279153 (Version 1)
Quarter: 2015Q3

REPORT INFORMATION
  Report Type: Spontaneous
  Country: US (occurrence: US)
  Receive Date: 20150717
  Receipt Date: 20150717
  Transmission Date: 20151125
  Serious: Yes (Other)
  Sender: FDA-Public Use
  Company Number: US-PFIZER INC-2015231249

PATIENT
  Age: 67 Year
  Sex: Male

DRUGS (4)
  1. RIFABUTIN. [Suspect]
     Active Substance: RIFABUTIN
     Indication: MYCOBACTERIUM AVIUM COMPLEX INFECTION
     Route: 048
  2. ISONIAZID W/PYRIDOXINE [Suspect]
     Active Substance: ISONIAZID\PYRIDOXINE
     Indication: MYCOBACTERIUM AVIUM COMPLEX INFECTION
  3. PYRAZINAMIDE. [Suspect]
     Active Substance: PYRAZINAMIDE
     Indication: MYCOBACTERIUM AVIUM COMPLEX INFECTION
  4. ETHAMBUTOL [Suspect]
     Active Substance: ETHAMBUTOL HYDROCHLORIDE
     Indication: MYCOBACTERIUM AVIUM COMPLEX INFECTION

REACTIONS (5)
  - Hypotension [None]
  - Pyrexia [None]
  - Atrial fibrillation [None]
  - No therapeutic response [None]
  - Immune reconstitution inflammatory syndrome [Recovering/Resolving]
